FAERS Safety Report 14447337 (Version 2)
Quarter: 2018Q1

REPORT INFORMATION
  Report Type: Spontaneous
  Country: US (occurrence: US)
  Receive Date: 20180126
  Receipt Date: 20180212
  Transmission Date: 20180509
  Serious: Yes (Death)
  Sender: FDA-Public Use
  Company Number: US-AKORN PHARMACEUTICALS-2018AKN00088

PATIENT
  Age: 68 Year
  Sex: Male
  Weight: 92.97 kg

DRUGS (3)
  1. MYORISAN [Suspect]
     Active Substance: ISOTRETINOIN
     Dosage: 40 MG, 2X/DAY
     Route: 048
     Dates: start: 2017, end: 201712
  2. MYORISAN [Suspect]
     Active Substance: ISOTRETINOIN
     Indication: HAEMANGIOMA OF SKIN
     Dosage: 40 MG, 1X/DAY
     Route: 048
     Dates: start: 2017, end: 2017
  3. AMNESTEEM [Suspect]
     Active Substance: ISOTRETINOIN
     Indication: HAEMANGIOMA OF SKIN
     Dosage: 40 MG, 2X/DAY
     Route: 048
     Dates: start: 20170801, end: 2017

REACTIONS (3)
  - Death [Fatal]
  - Off label use [Recovered/Resolved]
  - Product use in unapproved indication [Recovered/Resolved]

NARRATIVE: CASE EVENT DATE: 20170322
